FAERS Safety Report 25286186 (Version 2)
Quarter: 2025Q3

REPORT INFORMATION
  Report Type: Spontaneous
  Country: US (occurrence: US)
  Receive Date: 20250509
  Receipt Date: 20250810
  Transmission Date: 20251020
  Serious: No
  Sender: ALEXION PHARMACEUTICALS
  Company Number: US-AstraZeneca-CH-00864062A

PATIENT
  Age: 71 Year
  Sex: Female
  Weight: 147.41 kg

DRUGS (1)
  1. FASENRA [Suspect]
     Active Substance: BENRALIZUMAB
     Indication: Asthma
     Dosage: 30 MILLIGRAM, Q8W
     Dates: start: 20221008

REACTIONS (1)
  - Scabies [Recovered/Resolved]

NARRATIVE: CASE EVENT DATE: 20250301
